FAERS Safety Report 9445199 (Version 3)
Quarter: 2013Q3

REPORT INFORMATION
  Report Type: Spontaneous
  Country: FR (occurrence: None)
  Receive Date: 20130802
  Receipt Date: 20130918
  Transmission Date: 20140515
  Serious: Yes (Other)
  Sender: FDA-Public Use
  Company Number: ADR-2013-01282

PATIENT
  Sex: Female

DRUGS (2)
  1. BACLOFEN [Suspect]
  2. MORPHINE CHLORHYDRATE [Suspect]

REACTIONS (5)
  - Pain [None]
  - Implant site calcification [None]
  - Implant site fibrosis [None]
  - Device damage [None]
  - Device physical property issue [None]
